FAERS Safety Report 17692351 (Version 1)
Quarter: 2020Q2

REPORT INFORMATION
  Report Type: Spontaneous
  Country: US (occurrence: US)
  Receive Date: 20200421
  Receipt Date: 20200421
  Transmission Date: 20200714
  Serious: Yes (Hospitalization)
  Sender: FDA-Public Use
  Company Number: None

PATIENT
  Sex: Female

DRUGS (14)
  1. ASPIRIN. [Concomitant]
     Active Substance: ASPIRIN
     Dates: start: 20200421
  2. MESALAMINE. [Concomitant]
     Active Substance: MESALAMINE
     Dates: start: 20200421
  3. VITAMIN D3 [Concomitant]
     Active Substance: CHOLECALCIFEROL
     Dates: start: 20200421
  4. FERROUS SULF [Concomitant]
     Active Substance: FERROUS SULFATE
     Dates: start: 20200421
  5. FOLIC ACID. [Concomitant]
     Active Substance: FOLIC ACID
     Dates: start: 20200421
  6. ISOSORB MONO [Concomitant]
     Active Substance: ISOSORBIDE MONONITRATE
     Dates: start: 20200421
  7. CARVEDILOL. [Concomitant]
     Active Substance: CARVEDILOL
     Dates: start: 20200421
  8. LORATADINE. [Concomitant]
     Active Substance: LORATADINE
     Dates: start: 20200421
  9. NITROLINGUAL SPR PUMPSPRA [Concomitant]
     Dates: start: 20200421
  10. FUROSEMIDE. [Concomitant]
     Active Substance: FUROSEMIDE
     Dates: start: 20200421
  11. PLAVIX [Concomitant]
     Active Substance: CLOPIDOGREL BISULFATE
     Dates: start: 20200421
  12. SINGULAIR [Concomitant]
     Active Substance: MONTELUKAST SODIUM
     Dates: start: 20200421
  13. HUMIRA [Suspect]
     Active Substance: ADALIMUMAB
     Indication: COLITIS
     Dosage: ?          OTHER FREQUENCY:EVERY OTHER WEEK;?
     Route: 058
     Dates: start: 20180622
  14. RANITIDINE. [Concomitant]
     Active Substance: RANITIDINE
     Dates: start: 20200421

REACTIONS (1)
  - Hip arthroplasty [None]
